FAERS Safety Report 7137114-1 (Version None)
Quarter: 2010Q4

REPORT INFORMATION
  Report Type: 
  Country: None (occurrence: None)
  Receive Date: 20101206
  Receipt Date: 20090316
  Transmission Date: 20110411
  Serious: Yes (Death, Hospitalization)
  Sender: FDA-Public Use
  Company Number: US-ACTELION-A-US2006-13473

PATIENT

DRUGS (1)
  1. TRACLEER [Suspect]
     Indication: PULMONARY ARTERIAL HYPERTENSION
     Route: 048
     Dates: start: 20051025, end: 20080101

REACTIONS (11)
  - ASTHENIA [None]
  - CARDIAC FAILURE [None]
  - DEATH [None]
  - DRY MOUTH [None]
  - EPISTAXIS [None]
  - FATIGUE [None]
  - LIVER FUNCTION TEST ABNORMAL [None]
  - MALAISE [None]
  - RENAL DISORDER [None]
  - SEPTIC SHOCK [None]
  - SINUS CONGESTION [None]
